FAERS Safety Report 18458404 (Version 3)
Quarter: 2020Q4

REPORT INFORMATION
  Report Type: Not Available
  Country: US (occurrence: US)
  Receive Date: 20201103
  Receipt Date: 20201223
  Transmission Date: 20210114
  Serious: No
  Sender: FDA-Public Use
  Company Number: US-NEUROCRINE BIOSCIENCES INC.-2020NBI03874

PATIENT
  Age: 67 Year
  Sex: Female

DRUGS (4)
  1. INGREZZA [Suspect]
     Active Substance: VALBENAZINE
     Route: 048
     Dates: start: 20190415
  2. VENLAFAXINE [Concomitant]
     Active Substance: VENLAFAXINE HYDROCHLORIDE
  3. INGREZZA [Suspect]
     Active Substance: VALBENAZINE
     Indication: TARDIVE DYSKINESIA
     Route: 048
     Dates: start: 20190313, end: 2019
  4. CLOZAPINE. [Concomitant]
     Active Substance: CLOZAPINE
     Dosage: AT NIGHT

REACTIONS (3)
  - Balance disorder [Unknown]
  - Dizziness postural [Unknown]
  - Fall [Unknown]
